FAERS Safety Report 8433193-X (Version None)
Quarter: 2012Q2

REPORT INFORMATION
  Report Type: 
  Country: None (occurrence: None)
  Receive Date: 20120323
  Receipt Date: 20110923
  Transmission Date: 20120825
  Serious: Yes (Disabling, Other)
  Sender: FDA-Public Use
  Company Number: 163-21880-11060453

PATIENT
  Age: 64 Year
  Sex: Male

DRUGS (13)
  1. DEXAMETHASONE [Concomitant]
  2. ALLEGRA [Concomitant]
  3. SYNTHROID [Concomitant]
  4. FOSAMAX [Concomitant]
  5. PROTONIX [Concomitant]
  6. REVLIMID [Suspect]
     Indication: MULTIPLE MYELOMA
     Dosage: SEE IMAGE
     Route: 048
     Dates: start: 20100201
  7. REVLIMID [Suspect]
     Indication: AMYLOIDOSIS
     Dosage: SEE IMAGE
     Route: 048
     Dates: start: 20100201
  8. REVLIMID [Suspect]
     Indication: MULTIPLE MYELOMA
     Dosage: SEE IMAGE
     Route: 048
     Dates: start: 20090501
  9. REVLIMID [Suspect]
     Indication: AMYLOIDOSIS
     Dosage: SEE IMAGE
     Route: 048
     Dates: start: 20090501
  10. REVLIMID [Suspect]
     Indication: MULTIPLE MYELOMA
     Dosage: SEE IMAGE
     Route: 048
     Dates: start: 20110401
  11. REVLIMID [Suspect]
     Indication: AMYLOIDOSIS
     Dosage: SEE IMAGE
     Route: 048
     Dates: start: 20110401
  12. REVLIMID [Suspect]
     Indication: MULTIPLE MYELOMA
     Dosage: SEE IMAGE
     Route: 048
     Dates: start: 20081028
  13. REVLIMID [Suspect]
     Indication: AMYLOIDOSIS
     Dosage: SEE IMAGE
     Route: 048
     Dates: start: 20081028

REACTIONS (1)
  - PLATELET COUNT DECREASED [None]
